FAERS Safety Report 10694573 (Version 41)
Quarter: 2022Q3

REPORT INFORMATION
  Report Type: Other
  Country: CA (occurrence: None)
  Receive Date: 20150107
  Receipt Date: 20220719
  Transmission Date: 20221026
  Serious: Yes (Hospitalization, Other)
  Sender: FDA-Public Use
  Company Number: CA-ROCHE-1387659

PATIENT
  Age: 52 Year
  Sex: Female
  Weight: 48.805 kg

DRUGS (36)
  1. RITUXAN [Suspect]
     Active Substance: RITUXIMAB
     Indication: Rheumatoid arthritis
     Dosage: LAST RITUXIMAB INFUSION: 01/MAY/2014?MOST RECENT DOSE: 20/SEP/2017
     Route: 042
     Dates: start: 20160210
  2. RITUXAN [Suspect]
     Active Substance: RITUXIMAB
     Route: 042
     Dates: start: 20160210
  3. RITUXAN [Suspect]
     Active Substance: RITUXIMAB
     Route: 042
     Dates: start: 20170822
  4. RITUXAN [Suspect]
     Active Substance: RITUXIMAB
     Route: 042
     Dates: start: 20170920
  5. RITUXAN [Suspect]
     Active Substance: RITUXIMAB
     Route: 042
     Dates: start: 20140417
  6. PREDNISONE [Suspect]
     Active Substance: PREDNISONE
     Indication: Product used for unknown indication
     Route: 065
     Dates: end: 2015
  7. DIPHENHYDRAMINE HYDROCHLORIDE [Concomitant]
     Active Substance: DIPHENHYDRAMINE HYDROCHLORIDE
     Indication: Premedication
     Route: 048
     Dates: start: 20140417
  8. DIPHENHYDRAMINE HYDROCHLORIDE [Concomitant]
     Active Substance: DIPHENHYDRAMINE HYDROCHLORIDE
     Route: 048
     Dates: start: 20170822
  9. ACETAMINOPHEN [Concomitant]
     Active Substance: ACETAMINOPHEN
     Indication: Premedication
     Route: 048
     Dates: start: 20140417
  10. ACETAMINOPHEN [Concomitant]
     Active Substance: ACETAMINOPHEN
     Route: 048
     Dates: start: 20170822
  11. METHYLPREDNISOLONE [Concomitant]
     Active Substance: METHYLPREDNISOLONE
     Indication: Premedication
     Route: 048
     Dates: start: 20140417
  12. METHYLPREDNISOLONE [Concomitant]
     Active Substance: METHYLPREDNISOLONE
     Route: 042
     Dates: start: 20170822
  13. GABAPENTIN [Concomitant]
     Active Substance: GABAPENTIN
  14. HYDROMORPHONE [Concomitant]
     Active Substance: HYDROMORPHONE
  15. CYCLOBENZAPRINE [Concomitant]
     Active Substance: CYCLOBENZAPRINE
  16. METHOTREXATE [Concomitant]
     Active Substance: METHOTREXATE
  17. RAMIPRIL [Concomitant]
     Active Substance: RAMIPRIL
  18. CLONAZEPAM [Concomitant]
     Active Substance: CLONAZEPAM
  19. ALBUTEROL [Concomitant]
     Active Substance: ALBUTEROL
  20. ATROVENT [Concomitant]
     Active Substance: IPRATROPIUM BROMIDE
  21. VENLAFAXINE [Concomitant]
     Active Substance: VENLAFAXINE HYDROCHLORIDE
  22. MIRTAZAPINE [Concomitant]
     Active Substance: MIRTAZAPINE
  23. ZOPICLONE [Concomitant]
     Active Substance: ZOPICLONE
  24. PANTOPRAZOLE SODIUM [Concomitant]
     Active Substance: PANTOPRAZOLE SODIUM
  25. NAPROXEN [Concomitant]
     Active Substance: NAPROXEN
  26. TYLENOL WITH CODEINE [Concomitant]
     Active Substance: ACETAMINOPHEN\CODEINE PHOSPHATE
     Dosage: AS REQUIRED
  27. QUETIAPINE [Concomitant]
     Active Substance: QUETIAPINE
  28. TOPIRAMATE [Concomitant]
     Active Substance: TOPIRAMATE
     Indication: Migraine
  29. VARENICLINE TARTRATE [Concomitant]
     Active Substance: VARENICLINE TARTRATE
  30. BENADRYL [Concomitant]
     Active Substance: DIPHENHYDRAMINE HYDROCHLORIDE
     Indication: Premedication
     Route: 048
     Dates: start: 20140417
  31. SOLU-MEDROL [Concomitant]
     Active Substance: METHYLPREDNISOLONE SODIUM SUCCINATE
     Indication: Premedication
     Route: 042
     Dates: start: 20140417
  32. TYLENOL [Concomitant]
     Active Substance: ACETAMINOPHEN
     Indication: Premedication
     Route: 048
     Dates: start: 20140417
  33. BUPROPION [Concomitant]
     Active Substance: BUPROPION
  34. ESOMEPRAZOLE [Concomitant]
     Active Substance: ESOMEPRAZOLE
  35. LORAZEPAM [Concomitant]
     Active Substance: LORAZEPAM
  36. SPIRIVA [Concomitant]
     Active Substance: TIOTROPIUM BROMIDE MONOHYDRATE

REACTIONS (54)
  - Emphysema [Not Recovered/Not Resolved]
  - Pneumonia [Not Recovered/Not Resolved]
  - Sinus disorder [Unknown]
  - Migraine [Unknown]
  - Arthralgia [Not Recovered/Not Resolved]
  - Hypoaesthesia [Unknown]
  - Pain in extremity [Unknown]
  - Arthropathy [Unknown]
  - Infusion related reaction [Recovered/Resolved]
  - Influenza like illness [Recovering/Resolving]
  - Oral herpes [Not Recovered/Not Resolved]
  - Lip blister [Recovered/Resolved]
  - Arthritis [Not Recovered/Not Resolved]
  - Weight decreased [Unknown]
  - Hot flush [Recovered/Resolved]
  - Body temperature decreased [Unknown]
  - Oxygen saturation decreased [Unknown]
  - Weight increased [Unknown]
  - Peripheral swelling [Unknown]
  - Joint swelling [Unknown]
  - Oral herpes [Not Recovered/Not Resolved]
  - Cough [Unknown]
  - Hypotension [Unknown]
  - Throat irritation [Not Recovered/Not Resolved]
  - Cough [Not Recovered/Not Resolved]
  - Poor quality sleep [Unknown]
  - Blood pressure increased [Unknown]
  - Aphthous ulcer [Unknown]
  - Blood pressure systolic increased [Unknown]
  - Pneumonia [Unknown]
  - Chemical burn of skin [Recovered/Resolved]
  - Pruritus [Not Recovered/Not Resolved]
  - Wound [Not Recovered/Not Resolved]
  - Chronic obstructive pulmonary disease [Unknown]
  - Herpes zoster [Unknown]
  - Scratch [Not Recovered/Not Resolved]
  - Pulmonary congestion [Unknown]
  - Pyrexia [Recovered/Resolved]
  - Malaise [Unknown]
  - Nausea [Not Recovered/Not Resolved]
  - Rash [Not Recovered/Not Resolved]
  - Pain in extremity [Not Recovered/Not Resolved]
  - Rheumatoid arthritis [Not Recovered/Not Resolved]
  - Sleep apnoea syndrome [Not Recovered/Not Resolved]
  - Musculoskeletal stiffness [Not Recovered/Not Resolved]
  - Inflammation [Unknown]
  - Anxiety [Unknown]
  - Blood pressure diastolic abnormal [Unknown]
  - Dry mouth [Unknown]
  - Lower respiratory tract infection [Recovered/Resolved]
  - Cough [Not Recovered/Not Resolved]
  - Dysphonia [Unknown]
  - Poor venous access [Unknown]
  - Blood pressure systolic abnormal [Unknown]

NARRATIVE: CASE EVENT DATE: 20140417
